FAERS Safety Report 23627705 (Version 1)
Quarter: 2024Q1

REPORT INFORMATION
  Report Type: Spontaneous
  Country: FR (occurrence: FR)
  Receive Date: 20240313
  Receipt Date: 20240313
  Transmission Date: 20240410
  Serious: Yes (Hospitalization)
  Sender: FDA-Public Use
  Company Number: None

PATIENT
  Age: 39 Year
  Sex: Female
  Weight: 71 kg

DRUGS (16)
  1. GABAPENTIN [Suspect]
     Active Substance: GABAPENTIN
     Indication: Neuralgia
     Dosage: 2-1-2
     Route: 048
     Dates: start: 20231106
  2. GABAPENTIN [Suspect]
     Active Substance: GABAPENTIN
     Indication: Neuralgia
     Dosage: GABAPENTINE
     Route: 048
     Dates: start: 20231019, end: 20231105
  3. ACETAMINOPHEN [Concomitant]
     Active Substance: ACETAMINOPHEN
     Indication: Pain
     Route: 048
  4. ZOPICLONE [Concomitant]
     Active Substance: ZOPICLONE
     Indication: Sleep disorder
     Dosage: 0-0-1
     Route: 048
  5. MORPHINE SULFATE [Concomitant]
     Active Substance: MORPHINE SULFATE
     Indication: Pain
     Dosage: 1-4/D IF PAIN
     Route: 048
  6. LEVOCARNITINE [Concomitant]
     Active Substance: LEVOCARNITINE
     Indication: Nutritional supplementation
     Dosage: 1-1-1
     Route: 048
  7. LEVOTHYROXINE SODIUM [Concomitant]
     Active Substance: LEVOTHYROXINE SODIUM
     Indication: Hypothyroidism
     Dosage: 1-0-0?LEVOTHYROXINE SODIQUE
     Route: 048
  8. VENLAFAXINE HYDROCHLORIDE [Suspect]
     Active Substance: VENLAFAXINE HYDROCHLORIDE
     Indication: Neuralgia
     Dosage: 1-0-0
     Route: 048
  9. VENLAFAXINE HYDROCHLORIDE [Suspect]
     Active Substance: VENLAFAXINE HYDROCHLORIDE
     Indication: Neuralgia
     Dosage: 0-0-1?CHLORHYDRATE DE VENLAFAXINE
     Route: 048
     Dates: start: 20231016
  10. AMITRIPTYLINE HYDROCHLORIDE [Suspect]
     Active Substance: AMITRIPTYLINE HYDROCHLORIDE
     Indication: Neuralgia
     Dosage: 0-10 DROPS-25 DROPS
     Route: 048
  11. PANTOPRAZOLE [Suspect]
     Active Substance: PANTOPRAZOLE
     Indication: Oesophagitis
     Dosage: 1-0-1
     Route: 048
     Dates: start: 20231121
  12. PANTOPRAZOLE [Suspect]
     Active Substance: PANTOPRAZOLE
     Indication: Oesophagitis
     Route: 042
     Dates: start: 20231113, end: 20231120
  13. KETAMINE HYDROCHLORIDE [Suspect]
     Active Substance: KETAMINE HYDROCHLORIDE
     Indication: Chronic inflammatory demyelinating polyradiculoneuropathy
     Dosage: TIME INTERVAL: TOTAL: CHLORHYDRATE DE KETAMINE
     Route: 058
     Dates: start: 20231128, end: 20231128
  14. KETAMINE HYDROCHLORIDE [Suspect]
     Active Substance: KETAMINE HYDROCHLORIDE
     Indication: Chronic inflammatory demyelinating polyradiculoneuropathy
     Dosage: TIME INTERVAL: TOTAL
     Route: 058
     Dates: start: 20240102, end: 20240102
  15. ENOXAPARIN SODIUM [Concomitant]
     Active Substance: ENOXAPARIN SODIUM
     Indication: Thrombosis prophylaxis
     Dosage: ENOXAPARINE SODIQUE ((MAMMAL/PIG/GUTTUM MUCOSA))
     Route: 058
     Dates: start: 20231116, end: 20231121
  16. ENOXAPARIN SODIUM [Concomitant]
     Active Substance: ENOXAPARIN SODIUM
     Indication: Thrombosis prophylaxis
     Route: 058
     Dates: start: 20240119, end: 20240203

REACTIONS (2)
  - Spontaneous haematoma [Not Recovered/Not Resolved]
  - Spontaneous haematoma [Recovered/Resolved]

NARRATIVE: CASE EVENT DATE: 20231210
